FAERS Safety Report 8837083 (Version 3)
Quarter: 2013Q1

REPORT INFORMATION
  Report Type: Spontaneous
  Country: US (occurrence: US)
  Receive Date: 20121011
  Receipt Date: 20130118
  Transmission Date: 20140127
  Serious: Yes (Other)
  Sender: FDA-Public Use
  Company Number: CHPA2012US020755

PATIENT
  Age: 24 Year
  Sex: Female

DRUGS (1)
  1. PRIVATE LABEL [Suspect]
     Indication: SMOKING CESSATION THERAPY
     Dosage: 14 MG, ONCE/SINGLE
     Route: 062
     Dates: start: 20120927, end: 20120927

REACTIONS (4)
  - Application site burn [Unknown]
  - Application site vesicles [Not Recovered/Not Resolved]
  - Application site pain [Not Recovered/Not Resolved]
  - Emotional distress [Unknown]
